FAERS Safety Report 14535081 (Version 2)
Quarter: 2018Q1

REPORT INFORMATION
  Report Type: Spontaneous
  Country: US (occurrence: US)
  Receive Date: 20180215
  Receipt Date: 20180308
  Transmission Date: 20180509
  Serious: No
  Sender: FDA-Public Use
  Company Number: US-009507513-1802USA003536

PATIENT
  Age: 82 Year
  Sex: Female

DRUGS (9)
  1. DIOVAN [Concomitant]
     Active Substance: VALSARTAN
  2. PLAVIX [Concomitant]
     Active Substance: CLOPIDOGREL BISULFATE
  3. FUROSEMIDE. [Concomitant]
     Active Substance: FUROSEMIDE
  4. DULERA [Suspect]
     Active Substance: FORMOTEROL FUMARATE DIHYDRATE\MOMETASONE FUROATE
     Indication: ASTHMA
     Dosage: 1 DF, 2 PUFFS EVERY 12 HOURS
     Route: 055
     Dates: start: 20151113
  5. PROTONIX [Concomitant]
     Active Substance: PANTOPRAZOLE SODIUM
  6. SINGULAIR [Concomitant]
     Active Substance: MONTELUKAST SODIUM
  7. METOPROLOL ER [Concomitant]
     Active Substance: METOPROLOL SUCCINATE
  8. ATROVENT [Concomitant]
     Active Substance: IPRATROPIUM BROMIDE
  9. VYTORIN [Concomitant]
     Active Substance: EZETIMIBE\SIMVASTATIN

REACTIONS (4)
  - Device malfunction [Unknown]
  - Incorrect dosage administered [Unknown]
  - Nocturnal dyspnoea [Recovered/Resolved]
  - Wrong technique in product usage process [Unknown]

NARRATIVE: CASE EVENT DATE: 20180203
